FAERS Safety Report 6904027-7 (Version None)
Quarter: 2010Q3

REPORT INFORMATION
  Report Type: 
  Country: None (occurrence: None)
  Receive Date: 20100804
  Receipt Date: 20090227
  Transmission Date: 20110219
  Serious: Yes (Other)
  Sender: FDA-Public Use
  Company Number: US-PFIZER INC-2009159938

PATIENT
  Sex: Female
  Weight: 86.168 kg

DRUGS (8)
  1. LYRICA [Suspect]
     Indication: FIBROMYALGIA
     Dosage: 150 MG, 2X/DAY
     Dates: start: 20090115
  2. VALSARTAN [Concomitant]
  3. NORVASC [Concomitant]
  4. PRAVASTATIN [Concomitant]
  5. PLAVIX [Concomitant]
  6. TRAMADOL [Concomitant]
  7. EFFEXOR XR [Concomitant]
     Dosage: UNK
  8. SPIRIVA [Concomitant]

REACTIONS (3)
  - CRYING [None]
  - DYSPNOEA [None]
  - RASH [None]
